FAERS Safety Report 4710911-5 (Version None)
Quarter: 2005Q3

REPORT INFORMATION
  Report Type: 
  Country: None (occurrence: None)
  Receive Date: 20050708
  Receipt Date: 20050627
  Transmission Date: 20060218
  Serious: Yes (Hospitalization)
  Sender: FDA-Public Use
  Company Number: GXKR2005DE01284

PATIENT
  Age: 47 Year
  Sex: Female

DRUGS (7)
  1. CITALOPRAM (NGX)(CITALOPRAM) UNKNOWN [Suspect]
     Indication: BIPOLAR DISORDER
     Dosage: 20 MG UP TO 40 MG
  2. MIRTAZAPINE [Suspect]
     Indication: BIPOLAR DISORDER
     Dosage: 30 MG
  3. JOHANNE SKRAUT (NGX)(JOHANNE SKRAU) [Suspect]
     Indication: BIPOLAR DISORDER
     Dosage: 900 MG
  4. ZOPICLONE (NGX)(ZOPICLONE) [Suspect]
     Indication: BIPOLAR DISORDER
     Dosage: 7.5MG
  5. VENLAFAXINE HCL [Suspect]
     Indication: BIPOLAR DISORDER
     Dosage: 112.5 MG
  6. OLANZAPINE [Suspect]
     Indication: BIPOLAR DISORDER
     Dosage: SEE IMAGE
  7. ESTROGENS COMBINATIONS WITH OTHER DRUGS (NO INGREDIENTS /SUBSTANCES) [Concomitant]

REACTIONS (5)
  - ALANINE AMINOTRANSFERASE INCREASED [None]
  - ASPARTATE AMINOTRANSFERASE INCREASED [None]
  - GAMMA-GLUTAMYLTRANSFERASE INCREASED [None]
  - GLUTAMATE DEHYDROGENASE INCREASED [None]
  - HEPATOTOXICITY [None]
